FAERS Safety Report 6859260-X (Version None)
Quarter: 2010Q3

REPORT INFORMATION
  Report Type: 
  Country: None (occurrence: None)
  Receive Date: 20100719
  Receipt Date: 20080227
  Transmission Date: 20110219
  Serious: No
  Sender: FDA-Public Use
  Company Number: US-PFIZER INC-2008018997

PATIENT
  Sex: Female

DRUGS (2)
  1. CHANTIX [Suspect]
     Indication: SMOKING CESSATION THERAPY
     Dates: start: 20071203, end: 20080118
  2. CODEINE [Concomitant]

REACTIONS (5)
  - AGITATION [None]
  - DYSGEUSIA [None]
  - FEELING ABNORMAL [None]
  - INSOMNIA [None]
  - PAROSMIA [None]
